FAERS Safety Report 4968457-5 (Version None)
Quarter: 2006Q2

REPORT INFORMATION
  Report Type: 
  Country: None (occurrence: None)
  Receive Date: 20060410
  Receipt Date: 20051223
  Transmission Date: 20061013
  Serious: Yes (Hospitalization, Other)
  Sender: FDA-Public Use
  Company Number: US-MERCK-0512USA03779

PATIENT
  Age: 45 Year
  Sex: Female
  Weight: 96 kg

DRUGS (7)
  1. VIOXX [Suspect]
     Indication: SPINAL OSTEOARTHRITIS
     Route: 048
     Dates: start: 20000807, end: 20020101
  2. VIOXX [Suspect]
     Indication: MUSCLE STRAIN
     Route: 048
     Dates: start: 20000807, end: 20020101
  3. PRILOSEC [Concomitant]
     Route: 065
  4. ZESTRIL [Concomitant]
     Route: 065
  5. ALBUTEROL [Concomitant]
     Route: 065
  6. [THERAPY UNSPECIFIED] [Concomitant]
     Route: 065
  7. [THERAPY UNSPECIFIED] [Concomitant]
     Route: 065

REACTIONS (9)
  - CEREBROVASCULAR ACCIDENT [None]
  - COUGH [None]
  - FLANK PAIN [None]
  - GANGLION [None]
  - LOSS OF CONSCIOUSNESS [None]
  - MENISCUS LESION [None]
  - PAIN [None]
  - PNEUMONIA [None]
  - ROAD TRAFFIC ACCIDENT [None]
